FAERS Safety Report 9150872 (Version 2)
Quarter: 2013Q1

REPORT INFORMATION
  Report Type: Spontaneous
  Country: US (occurrence: None)
  Receive Date: 20130214
  Receipt Date: 20130228
  Transmission Date: 20140127
  Serious: Yes (Life-Threatening)
  Sender: FDA-Public Use
  Company Number: HA13-024-AE

PATIENT
  Age: 48 Year
  Sex: Female
  Weight: 81.65 kg

DRUGS (1)
  1. TRAMADOL HCI [Suspect]
     Indication: HEADACHE
     Dosage: 1 TABLET , 4-6/DAY
     Route: 048
     Dates: start: 20041015, end: 20120501

REACTIONS (2)
  - Seizure like phenomena [None]
  - Movement disorder [None]
